FAERS Safety Report 8554414-9 (Version None)
Quarter: 2012Q3

REPORT INFORMATION
  Report Type: 
  Country: None (occurrence: None)
  Receive Date: 20120731
  Receipt Date: 20120716
  Transmission Date: 20120928
  Serious: No
  Sender: FDA-Public Use
  Company Number: US-ASTRAZENECA-2012SE49151

PATIENT
  Sex: Female
  Weight: 48.5 kg

DRUGS (4)
  1. RHINOCORT [Suspect]
     Indication: SEASONAL ALLERGY
     Dosage: ONE SPRAY PER NOSTRIL ONCE A DAY
     Route: 045
     Dates: start: 20050101
  2. RHINOCORT [Suspect]
     Dosage: TWO SPRAY PER NOSTRIL, TWICE A DAY
     Route: 045
  3. ACIPHEX [Concomitant]
  4. RHINOCORT [Suspect]
     Dosage: ONE SPRAY PER NOSTRIL ONCE A DAY
     Route: 045

REACTIONS (4)
  - PAROSMIA [None]
  - OFF LABEL USE [None]
  - NASOPHARYNGITIS [None]
  - INTENTIONAL DRUG MISUSE [None]
